FAERS Safety Report 6896624-2 (Version None)
Quarter: 2010Q3

REPORT INFORMATION
  Report Type: 
  Country: None (occurrence: None)
  Receive Date: 20100802
  Receipt Date: 20070312
  Transmission Date: 20110219
  Serious: No
  Sender: FDA-Public Use
  Company Number: US-PFIZER INC-2007004356

PATIENT
  Sex: Male
  Weight: 68.04 kg

DRUGS (5)
  1. LYRICA [Suspect]
     Indication: NEURALGIA
  2. LYRICA [Suspect]
     Indication: BURNING SENSATION
  3. AVANDIA [Concomitant]
  4. LIPITOR [Concomitant]
  5. GLUCOPHAGE [Concomitant]

REACTIONS (1)
  - DRUG INEFFECTIVE [None]
